FAERS Safety Report 7240367-2 (Version None)
Quarter: 2011Q1

REPORT INFORMATION
  Report Type: 
  Country: None (occurrence: None)
  Receive Date: 20110119
  Receipt Date: 20110119
  Transmission Date: 20110831
  Serious: Yes (Other)
  Sender: FDA-Public Use
  Company Number: None

PATIENT
  Age: 46 Year
  Sex: Female
  Weight: 62.5964 kg

DRUGS (1)
  1. LUPRON [Suspect]
     Indication: ENDOMETRIOSIS
     Dosage: 3.75 MG ONE INJECTION IM
     Route: 030
     Dates: start: 20101016, end: 20101117

REACTIONS (35)
  - VISION BLURRED [None]
  - INSOMNIA [None]
  - WEIGHT INCREASED [None]
  - DEPRESSION [None]
  - EMOTIONAL DISORDER [None]
  - SUICIDAL IDEATION [None]
  - ACTIVITIES OF DAILY LIVING IMPAIRED [None]
  - BLOOD URINE PRESENT [None]
  - PHOTOPHOBIA [None]
  - INTRAOCULAR PRESSURE INCREASED [None]
  - DISTURBANCE IN ATTENTION [None]
  - HOT FLUSH [None]
  - MEMORY IMPAIRMENT [None]
  - IRRITABILITY [None]
  - DYSPNOEA [None]
  - PAIN IN EXTREMITY [None]
  - HYPOAESTHESIA [None]
  - DRUG WITHDRAWAL SYNDROME [None]
  - HEADACHE [None]
  - VOMITING [None]
  - CONSTIPATION [None]
  - SOMNAMBULISM [None]
  - HYPERTENSION [None]
  - BREAST ENLARGEMENT [None]
  - MOOD SWINGS [None]
  - NIGHTMARE [None]
  - AGGRESSION [None]
  - MIGRAINE [None]
  - HIGH DENSITY LIPOPROTEIN INCREASED [None]
  - TREMOR [None]
  - CHILLS [None]
  - PAIN [None]
  - CRYING [None]
  - APPETITE DISORDER [None]
  - PARAESTHESIA [None]
